FAERS Safety Report 8367507-6 (Version None)
Quarter: 2012Q2

REPORT INFORMATION
  Report Type: 
  Country: None (occurrence: None)
  Receive Date: 20120517
  Receipt Date: 20120330
  Transmission Date: 20120825
  Serious: No
  Sender: FDA-Public Use
  Company Number: US-GLAXOSMITHKLINE-A0973252A

PATIENT
  Sex: Male

DRUGS (1)
  1. VOTRIENT [Suspect]
     Indication: PROSTATE CANCER
     Dosage: 800MGD PER DAY
     Route: 048

REACTIONS (2)
  - MALAISE [None]
  - OFF LABEL USE [None]
